FAERS Safety Report 9441012 (Version 2)
Quarter: 2014Q1

REPORT INFORMATION
  Report Type: Spontaneous
  Country: US (occurrence: US)
  Receive Date: 20130805
  Receipt Date: 20140217
  Transmission Date: 20141002
  Serious: Yes (Hospitalization, Other)
  Sender: FDA-Public Use
  Company Number: US-009507513-1307USA017045

PATIENT
  Sex: Female
  Weight: 52.61 kg

DRUGS (3)
  1. NUVARING [Suspect]
     Indication: CONTRACEPTION
     Dosage: UNK
     Route: 067
     Dates: start: 20120924, end: 201211
  2. MAXZIDE [Concomitant]
     Indication: HYPERTENSION
     Dosage: UNK
     Dates: start: 201208
  3. TOPIRAMATE [Suspect]
     Indication: MIGRAINE
     Dosage: 25 MG, QD
     Dates: start: 201208

REACTIONS (6)
  - Coagulopathy [Unknown]
  - Pulmonary embolism [Unknown]
  - Pulmonary infarction [Unknown]
  - Sinus tachycardia [Unknown]
  - Deep vein thrombosis [Unknown]
  - Osteoarthritis [Unknown]
